FAERS Safety Report 8183752-7 (Version None)
Quarter: 2012Q1

REPORT INFORMATION
  Report Type: 
  Country: None (occurrence: None)
  Receive Date: 20120305
  Receipt Date: 20120223
  Transmission Date: 20120608
  Serious: Yes (Death)
  Sender: FDA-Public Use
  Company Number: US-SANOFI-AVENTIS-2012SA012442

PATIENT
  Sex: Female

DRUGS (5)
  1. LOVENOX [Suspect]
     Dates: start: 20111115, end: 20111221
  2. LOVENOX [Suspect]
     Dates: start: 20110412, end: 20110719
  3. LOVENOX [Suspect]
     Dates: start: 20110302, end: 20110405
  4. LOVENOX [Suspect]
     Dates: start: 20110905, end: 20111106
  5. LOVENOX [Suspect]
     Dates: start: 20110801, end: 20110902

REACTIONS (3)
  - DRUG INTOLERANCE [None]
  - DEATH [None]
  - ADVERSE EVENT [None]
